FAERS Safety Report 5536165-8 (Version None)
Quarter: 2007Q4

REPORT INFORMATION
  Report Type: 
  Country: None (occurrence: None)
  Receive Date: 20071206
  Receipt Date: 20071127
  Transmission Date: 20080405
  Serious: Yes (Disabling)
  Sender: FDA-Public Use
  Company Number: DE-PFIZER INC-2007092126

PATIENT
  Sex: Female
  Weight: 90 kg

DRUGS (2)
  1. AROMASIN [Suspect]
     Indication: BREAST CANCER
     Route: 048
     Dates: start: 20070201, end: 20071022
  2. LYRICA [Concomitant]
     Route: 048

REACTIONS (3)
  - OEDEMA PERIPHERAL [None]
  - POLYARTHRITIS [None]
  - TENOSYNOVITIS [None]
